FAERS Safety Report 13947508 (Version 1)
Quarter: 2017Q3

REPORT INFORMATION
  Report Type: Spontaneous
  Country: GB (occurrence: GB)
  Receive Date: 20170908
  Receipt Date: 20170908
  Transmission Date: 20171128
  Serious: Yes (Hospitalization)
  Sender: FDA-Public Use
  Company Number: GB-ASTRAZENECA-2017SE91034

PATIENT
  Age: 5 Year
  Sex: Male
  Weight: 24.6 kg

DRUGS (1)
  1. QUETIAPINE. [Suspect]
     Active Substance: QUETIAPINE
     Dosage: 150.0MG UNKNOWN
     Route: 045

REACTIONS (3)
  - Electrocardiogram PR prolongation [Recovering/Resolving]
  - Accidental exposure to product by child [Unknown]
  - Incorrect route of drug administration [Unknown]
